FAERS Safety Report 5693644-0 (Version None)
Quarter: 2008Q2

REPORT INFORMATION
  Report Type: 
  Country: None (occurrence: None)
  Receive Date: 20080328
  Receipt Date: 20070926
  Transmission Date: 20081010
  Serious: Yes (Other)
  Sender: FDA-Public Use
  Company Number: HQWYE347027SEP07

PATIENT
  Age: 51 Year
  Sex: Male

DRUGS (1)
  1. PROTONIX [Suspect]
     Dosage: ORAL
     Route: 048

REACTIONS (1)
  - DRUG SCREEN POSITIVE [None]
